FAERS Safety Report 12712777 (Version 1)
Quarter: 2016Q3

REPORT INFORMATION
  Report Type: Report from Study
  Country: US (occurrence: US)
  Receive Date: 20160902
  Receipt Date: 20160902
  Transmission Date: 20161109
  Serious: Yes (Disabling, Other)
  Sender: FDA-Public Use
  Company Number: US-REGENERON PHARMACEUTICALS, INC.-2016-21074

PATIENT

DRUGS (7)
  1. SOTALOL. [Concomitant]
     Active Substance: SOTALOL
     Indication: PRODUCT USED FOR UNKNOWN INDICATION
     Dosage: 120 MG MILLIGRAM(S), UNK
     Dates: start: 2015
  2. EYLEA [Suspect]
     Active Substance: AFLIBERCEPT
     Indication: RETINAL HAEMORRHAGE
     Dosage: UNK
     Route: 031
     Dates: start: 201506, end: 201509
  3. ATORVASTATIN [Concomitant]
     Active Substance: ATORVASTATIN
     Indication: PRODUCT USED FOR UNKNOWN INDICATION
     Dosage: UNK
     Dates: start: 2015
  4. HYDROCHLOROTHIAZIDE. [Concomitant]
     Active Substance: HYDROCHLOROTHIAZIDE
     Indication: PRODUCT USED FOR UNKNOWN INDICATION
     Dosage: 25 MG MILLIGRAM(S), UNK
     Dates: start: 2015
  5. ESTRADIOL. [Concomitant]
     Active Substance: ESTRADIOL
     Indication: PRODUCT USED FOR UNKNOWN INDICATION
     Dosage: 1 MG MILLIGRAM(S), UNK
     Dates: start: 2015
  6. METOPROLOL. [Concomitant]
     Active Substance: METOPROLOL
     Indication: PRODUCT USED FOR UNKNOWN INDICATION
     Dosage: 50 MG MILLIGRAM(S), UNK
     Dates: start: 2015
  7. POTASSIUM [Concomitant]
     Active Substance: POTASSIUM
     Indication: PRODUCT USED FOR UNKNOWN INDICATION
     Dosage: UNK
     Dates: start: 2015

REACTIONS (6)
  - Bladder operation [Unknown]
  - Lacrimation increased [Unknown]
  - Vitreous floaters [Recovered/Resolved]
  - Blindness transient [Recovered/Resolved]
  - Disturbance in attention [Unknown]
  - Eye pain [Unknown]

NARRATIVE: CASE EVENT DATE: 2015
